FAERS Safety Report 25608950 (Version 1)
Quarter: 2025Q3

REPORT INFORMATION
  Report Type: Spontaneous
  Country: US (occurrence: US)
  Receive Date: 20250726
  Receipt Date: 20250726
  Transmission Date: 20251021
  Serious: No
  Sender: SANOFI AVENTIS
  Company Number: US-SA-2025SA213445

PATIENT
  Sex: Male
  Weight: 95.45 kg

DRUGS (30)
  1. KEVZARA [Suspect]
     Active Substance: SARILUMAB
     Indication: Polymyalgia rheumatica
     Dosage: 200 MG, QOW
     Route: 058
  2. AMVUTTRA [Concomitant]
     Active Substance: VUTRISIRAN
  3. VYNDAQEL [Concomitant]
     Active Substance: TAFAMIDIS MEGLUMINE
  4. SODIUM CHLORIDE [Concomitant]
     Active Substance: SODIUM CHLORIDE
  5. LIDOCAINE [Concomitant]
     Active Substance: LIDOCAINE
  6. EPINEPHRINE [Concomitant]
     Active Substance: EPINEPHRINE
  7. DIPHENHYDRAMINE HYDROCHLORIDE [Concomitant]
     Active Substance: DIPHENHYDRAMINE HYDROCHLORIDE
  8. ACETAMINOPHEN [Concomitant]
     Active Substance: ACETAMINOPHEN
  9. GAMMAGARD S/D [Concomitant]
     Active Substance: HUMAN IMMUNOGLOBULIN G
  10. PREDNISONE [Concomitant]
     Active Substance: PREDNISONE
  11. PRILOSEC OTC [Concomitant]
     Active Substance: OMEPRAZOLE MAGNESIUM
  12. TORSEMIDE [Concomitant]
     Active Substance: TORSEMIDE
  13. PROBIOTICS NOS [Concomitant]
     Active Substance: PROBIOTICS NOS
  14. FIBERCON [Concomitant]
     Active Substance: CALCIUM POLYCARBOPHIL
  15. MELATONIN [Concomitant]
     Active Substance: MELATONIN
  16. VITAMIN D3 [Concomitant]
     Active Substance: CHOLECALCIFEROL
  17. VITAMIN B12 [Concomitant]
     Active Substance: CYANOCOBALAMIN
  18. MEDICAL FOOD [Concomitant]
     Active Substance: MEDICAL FOOD
  19. LEVOXYL [Concomitant]
     Active Substance: LEVOTHYROXINE SODIUM
  20. ALBUTEROL SULFATE [Concomitant]
     Active Substance: ALBUTEROL SULFATE
  21. BENADRYL [Concomitant]
     Active Substance: DIPHENHYDRAMINE HYDROCHLORIDE
  22. METOPROLOL TARTRATE [Concomitant]
     Active Substance: METOPROLOL TARTRATE
  23. LIDODERM [Concomitant]
     Active Substance: LIDOCAINE
  24. TYLENOL EXTRA STRENGTH [Concomitant]
     Active Substance: ACETAMINOPHEN
  25. VITAMIN A [Concomitant]
     Active Substance: VITAMIN A
  26. ELIQUIS [Concomitant]
     Active Substance: APIXABAN
  27. AMIODARONE HYDROCHLORIDE [Concomitant]
     Active Substance: AMIODARONE HYDROCHLORIDE
  28. HIZENTRA [Concomitant]
     Active Substance: HUMAN IMMUNOGLOBULIN G
  29. HIZENTRA [Concomitant]
     Active Substance: HUMAN IMMUNOGLOBULIN G
  30. HIZENTRA [Concomitant]
     Active Substance: HUMAN IMMUNOGLOBULIN G

REACTIONS (1)
  - Urinary tract infection [Unknown]
